FAERS Safety Report 20130001 (Version 1)
Quarter: 2021Q4

REPORT INFORMATION
  Report Type: Spontaneous
  Country: CN (occurrence: CN)
  Receive Date: 20211130
  Receipt Date: 20211130
  Transmission Date: 20220304
  Serious: Yes (Hospitalization)
  Sender: FDA-Public Use
  Company Number: CN-GLAXOSMITHKLINE-CNCH2021APC085723

PATIENT
  Age: 56 Year
  Sex: Female
  Weight: 60 kg

DRUGS (1)
  1. IBUPROFEN [Suspect]
     Active Substance: IBUPROFEN
     Indication: Analgesic therapy
     Dosage: 0.3 G, BID
     Route: 048
     Dates: start: 20211109, end: 20211110

REACTIONS (6)
  - Abdominal pain upper [Recovering/Resolving]
  - Nausea [Recovering/Resolving]
  - Vomiting [Recovering/Resolving]
  - Discoloured vomit [Recovering/Resolving]
  - Asthenia [Recovering/Resolving]
  - Abdominal tenderness [Recovering/Resolving]

NARRATIVE: CASE EVENT DATE: 20211110
